FAERS Safety Report 5737730-5 (Version None)
Quarter: 2008Q2

REPORT INFORMATION
  Report Type: 
  Country: None (occurrence: None)
  Receive Date: 20080514
  Receipt Date: 20080509
  Transmission Date: 20081010
  Serious: Yes (Other)
  Sender: FDA-Public Use
  Company Number: B0400800A

PATIENT
  Age: 31 Year
  Sex: Female

DRUGS (7)
  1. SEROXAT [Suspect]
     Dosage: 20MG PER DAY
     Route: 048
     Dates: start: 19971006
  2. SEROXAT [Suspect]
     Route: 048
  3. LORAZEPAM [Concomitant]
     Dates: start: 20041115
  4. OLANZAPINE [Concomitant]
     Route: 065
  5. SEMISODIUM VALPROATE [Concomitant]
     Dosage: 300MG TWICE PER DAY
  6. AMITRIPTYLINE HCL [Concomitant]
  7. NOZINAN [Concomitant]

REACTIONS (25)
  - ABNORMAL DREAMS [None]
  - AGITATION [None]
  - ANOREXIA [None]
  - ANXIETY [None]
  - CONFUSIONAL STATE [None]
  - DEPRESSION [None]
  - DISTURBANCE IN ATTENTION [None]
  - DIZZINESS [None]
  - DRUG DEPENDENCE [None]
  - DRUG WITHDRAWAL SYNDROME [None]
  - FATIGUE [None]
  - HEADACHE [None]
  - HYPOAESTHESIA [None]
  - ILL-DEFINED DISORDER [None]
  - INSOMNIA [None]
  - IRRITABILITY [None]
  - LETHARGY [None]
  - MEMORY IMPAIRMENT [None]
  - MOOD SWINGS [None]
  - NIGHT SWEATS [None]
  - NIGHTMARE [None]
  - PARAESTHESIA [None]
  - PHOBIA [None]
  - TEARFULNESS [None]
  - TREMOR [None]
